FAERS Safety Report 8042621-3 (Version None)
Quarter: 2012Q1

REPORT INFORMATION
  Report Type: 
  Country: None (occurrence: None)
  Receive Date: 20120112
  Receipt Date: 20120110
  Transmission Date: 20120608
  Serious: No
  Sender: FDA-Public Use
  Company Number: US-PFIZER INC-2011309572

PATIENT
  Sex: Female
  Weight: 39 kg

DRUGS (4)
  1. LIPITOR [Suspect]
     Indication: BLOOD CHOLESTEROL INCREASED
     Dosage: 10 MG, 1X/DAY
     Route: 048
  2. ADVAIR DISKUS 100/50 [Concomitant]
     Indication: CHRONIC OBSTRUCTIVE PULMONARY DISEASE
     Dosage: FLUTICASONE/SALMETEROL 500/50 MCG, UNK
  3. TRAZODONE [Concomitant]
     Dosage: UNK
  4. SERTRALINE [Concomitant]
     Dosage: UNK

REACTIONS (1)
  - BODY HEIGHT DECREASED [None]
